FAERS Safety Report 9052728 (Version 2)
Quarter: 2013Q1

REPORT INFORMATION
  Report Type: Spontaneous
  Country: JP (occurrence: JP)
  Receive Date: 20130207
  Receipt Date: 20130222
  Transmission Date: 20140127
  Serious: Yes (Other)
  Sender: FDA-Public Use
  Company Number: JP-ROCHE-1183365

PATIENT
  Age: 7 None
  Sex: Male

DRUGS (2)
  1. AVASTIN [Suspect]
     Indication: COLON CANCER
     Dosage: DOSAGE IS UNCERTAIN.
     Route: 041
  2. XELODA [Suspect]
     Indication: COLON CANCER
     Dosage: IT IS ADMINISTER/ONE WEEKLY HOLIDAY MEDICINE FOR TWO WEEKS.
     Route: 048

REACTIONS (1)
  - Gait disturbance [Not Recovered/Not Resolved]
